FAERS Safety Report 9869294 (Version 2)
Quarter: 2014Q1

REPORT INFORMATION
  Report Type: Spontaneous
  Country: US (occurrence: US)
  Receive Date: 20140205
  Receipt Date: 20140222
  Transmission Date: 20141002
  Serious: Yes (Other)
  Sender: FDA-Public Use
  Company Number: US-ROCHE-1343907

PATIENT
  Age: 25 Year
  Sex: Female

DRUGS (2)
  1. VEMURAFENIB [Suspect]
     Indication: MALIGNANT MELANOMA
     Route: 065
  2. VEMURAFENIB [Suspect]
     Route: 065

REACTIONS (3)
  - Uveitis [Recovered/Resolved]
  - Cystoid macular oedema [Recovered/Resolved]
  - Arthralgia [Unknown]
